FAERS Safety Report 18342061 (Version 1)
Quarter: 2020Q4

REPORT INFORMATION
  Report Type: Spontaneous
  Country: FR (occurrence: FR)
  Receive Date: 20201005
  Receipt Date: 20201005
  Transmission Date: 20210113
  Serious: Yes (Hospitalization)
  Sender: FDA-Public Use
  Company Number: FR-MERZ PHARMACEUTICALS GMBH-20-03478

PATIENT
  Age: 36 Year
  Sex: Female

DRUGS (2)
  1. XEOMIN [Suspect]
     Active Substance: INCOBOTULINUMTOXINA
     Indication: MIGRAINE
     Route: 058
     Dates: start: 20200825, end: 20200825
  2. XEOMIN [Suspect]
     Active Substance: INCOBOTULINUMTOXINA
     Route: 030
     Dates: start: 20200825, end: 20200825

REACTIONS (3)
  - Chorioretinitis [Not Recovered/Not Resolved]
  - Off label use [Unknown]
  - Incorrect route of product administration [Unknown]

NARRATIVE: CASE EVENT DATE: 20200825
